APPROVED DRUG PRODUCT: CLEOCIN HYDROCHLORIDE
Active Ingredient: CLINDAMYCIN HYDROCHLORIDE
Strength: EQ 150MG BASE
Dosage Form/Route: CAPSULE;ORAL
Application: N050162 | Product #002 | TE Code: AB
Applicant: PFIZER INC
Approved: Approved Prior to Jan 1, 1982 | RLD: Yes | RS: No | Type: RX